FAERS Safety Report 19313379 (Version 1)
Quarter: 2021Q2

REPORT INFORMATION
  Report Type: Spontaneous
  Country: US (occurrence: US)
  Receive Date: 20210527
  Receipt Date: 20210527
  Transmission Date: 20210717
  Serious: Yes (Hospitalization)
  Sender: FDA-Public Use
  Company Number: None

PATIENT
  Age: 62 Year
  Sex: Male
  Weight: 70 kg

DRUGS (3)
  1. ACALABRUTINIB. [Suspect]
     Active Substance: ACALABRUTINIB
     Dates: end: 20210327
  2. CYTARABINE. [Suspect]
     Active Substance: CYTARABINE
     Dates: end: 20210318
  3. RITUXIMAB (MOAB C2B8 ANTI CD20, CHIMERIC) [Suspect]
     Active Substance: RITUXIMAB
     Dates: end: 20210317

REACTIONS (2)
  - Autoimmune haemolytic anaemia [None]
  - Febrile neutropenia [None]

NARRATIVE: CASE EVENT DATE: 20210328
